FAERS Safety Report 22913392 (Version 2)
Quarter: 2024Q2

REPORT INFORMATION
  Report Type: Spontaneous
  Country: MD (occurrence: MD)
  Receive Date: 20230906
  Receipt Date: 20240411
  Transmission Date: 20240716
  Serious: Yes (Other)
  Sender: FDA-Public Use
  Company Number: MD-SUN PHARMACEUTICAL INDUSTRIES LTD-2023R1-403807

PATIENT
  Age: 43 Year
  Sex: Male

DRUGS (2)
  1. DOXEPIN [Suspect]
     Active Substance: DOXEPIN
     Indication: Post-traumatic stress disorder
     Dosage: 15 MILLIGRAM, DAILY
     Route: 065
     Dates: start: 2015
  2. CITALOPRAM [Concomitant]
     Active Substance: CITALOPRAM\CITALOPRAM HYDROBROMIDE
     Indication: Post-traumatic stress disorder
     Dosage: 20 MILLIGRAM, DAILY
     Route: 065
     Dates: start: 2007

REACTIONS (1)
  - Hypoglycaemia [Recovered/Resolved]
